FAERS Safety Report 8727563 (Version 4)
Quarter: 2013Q2

REPORT INFORMATION
  Report Type: Spontaneous
  Country: US (occurrence: US)
  Receive Date: 20120816
  Receipt Date: 20130419
  Transmission Date: 20140414
  Serious: Yes (Hospitalization)
  Sender: FDA-Public Use
  Company Number: US-B.I. PHARMACEUTICALS,INC./RIDGEFIELD-2012-BP-18734BP

PATIENT
  Age: 82 Year
  Sex: Male
  Weight: 81.64 kg

DRUGS (11)
  1. PRADAXA [Suspect]
     Indication: ATRIAL FIBRILLATION
     Dosage: 300 MG
     Dates: start: 20110420, end: 20120215
  2. NAMENDA [Concomitant]
     Dates: start: 2005
  3. GALANTAMINE [Concomitant]
     Dates: start: 2005
  4. BACLOFEN [Concomitant]
     Dates: start: 2005
  5. PREDNISONE [Concomitant]
     Dates: start: 2005
  6. AVODART [Concomitant]
     Dates: start: 2005
  7. PROSCAR [Concomitant]
     Dates: start: 2005
  8. FLOMAX [Concomitant]
     Dates: start: 2005
  9. SEROQUEL [Concomitant]
     Dates: start: 2007
  10. LIPITOR [Concomitant]
     Dates: start: 2005
  11. AMBIEN [Concomitant]
     Dates: start: 2006

REACTIONS (2)
  - Intraventricular haemorrhage [Not Recovered/Not Resolved]
  - Subarachnoid haemorrhage [Not Recovered/Not Resolved]
